FAERS Safety Report 7006989-9 (Version None)
Quarter: 2010Q3

REPORT INFORMATION
  Report Type: 
  Country: None (occurrence: None)
  Receive Date: 20100922
  Receipt Date: 20100914
  Transmission Date: 20110219
  Serious: Yes (Death)
  Sender: FDA-Public Use
  Company Number: GB-CUBIST-2010S1001381

PATIENT

DRUGS (1)
  1. CUBICIN [Suspect]
     Indication: STAPHYLOCOCCAL BACTERAEMIA

REACTIONS (2)
  - ENDOCARDITIS [None]
  - STAPHYLOCOCCAL SEPSIS [None]
